FAERS Safety Report 16217178 (Version 1)
Quarter: 2019Q2

REPORT INFORMATION
  Report Type: Spontaneous
  Country: US (occurrence: US)
  Receive Date: 20190419
  Receipt Date: 20190419
  Transmission Date: 20190711
  Serious: No
  Sender: FDA-Public Use
  Company Number: US-AMGEN-USASP2019059967

PATIENT
  Age: 41 Year
  Sex: Female

DRUGS (1)
  1. XGEVA [Suspect]
     Active Substance: DENOSUMAB
     Indication: PROPHYLAXIS
     Dosage: 120 MILLIGRAM, Q2WK
     Route: 065
     Dates: start: 201511, end: 201810

REACTIONS (3)
  - Hepatic enzyme increased [Unknown]
  - Amylase increased [Unknown]
  - Tooth disorder [Unknown]
